FAERS Safety Report 12066868 (Version 2)
Quarter: 2016Q1

REPORT INFORMATION
  Report Type: Spontaneous
  Country: IE (occurrence: IE)
  Receive Date: 20160211
  Receipt Date: 20160320
  Transmission Date: 20160526
  Serious: Yes (Other)
  Sender: FDA-Public Use
  Company Number: IE-009507513-1602IRL001399

PATIENT
  Age: 29 Year
  Sex: Female

DRUGS (4)
  1. PREGNYL [Suspect]
     Active Substance: CHORIOGONADOTROPIN ALFA
     Indication: IN VITRO FERTILISATION
     Dosage: 5000 IU, QD
     Dates: start: 20151026
  2. GONAL-F [Suspect]
     Active Substance: FOLLITROPIN
     Indication: IN VITRO FERTILISATION
     Dosage: DAILY DOSE 150 IU
     Dates: start: 20151019
  3. INNOHEP 2500 [Concomitant]
     Dosage: 10000IU/ML
  4. DOSTINEX [Concomitant]
     Active Substance: CABERGOLINE
     Dosage: UNK

REACTIONS (3)
  - Malaise [Recovered/Resolved]
  - Abdominal distension [Recovered/Resolved]
  - Ovarian hyperstimulation syndrome [Recovered/Resolved]

NARRATIVE: CASE EVENT DATE: 20151104
